FAERS Safety Report 15491144 (Version 2)
Quarter: 2018Q4

REPORT INFORMATION
  Report Type: Spontaneous
  Country: DE (occurrence: DE)
  Receive Date: 20181012
  Receipt Date: 20181026
  Transmission Date: 20190205
  Serious: Yes (Hospitalization, Other)
  Sender: FDA-Public Use
  Company Number: DE-AMGEN-DEUSP2018141021

PATIENT
  Age: 50 Year
  Sex: Female
  Weight: 72 kg

DRUGS (8)
  1. FUROSEMIDE. [Concomitant]
     Active Substance: FUROSEMIDE
  2. ENBREL [Suspect]
     Active Substance: ETANERCEPT
     Indication: POLYARTHRITIS
     Dosage: 50 MG, 1X/WK
     Route: 058
     Dates: start: 200912
  3. LANTAREL [Suspect]
     Active Substance: METHOTREXATE SODIUM
     Dosage: 20 MG / 10 MG AND 7.5 MG ONE TIME PER WEEK
     Route: 065
  4. LANTAREL [Suspect]
     Active Substance: METHOTREXATE SODIUM
     Indication: RHEUMATOID ARTHRITIS
     Dosage: 20 MG / 10 MG AND 7.5 MG ONE TIME PER WEEK
     Route: 058
     Dates: start: 1999
  5. PREDNISONE. [Suspect]
     Active Substance: PREDNISONE
     Indication: RHEUMATOID ARTHRITIS
     Dosage: 7.5 MG, 1X/DAY
     Route: 048
     Dates: start: 2001
  6. ENBREL [Suspect]
     Active Substance: ETANERCEPT
     Indication: RHEUMATOID ARTHRITIS
     Dosage: 50 MG, EVERY WEEK
     Route: 058
     Dates: start: 20071201, end: 200911
  7. LANTAREL [Suspect]
     Active Substance: METHOTREXATE SODIUM
     Dosage: 20 MG / 10 MG AND 7.5 MG ONE TIME PER WEEK
     Route: 065
  8. OMEPRAZOLE. [Concomitant]
     Active Substance: OMEPRAZOLE
     Dosage: UNK

REACTIONS (1)
  - Rheumatoid arthritis [Recovered/Resolved]

NARRATIVE: CASE EVENT DATE: 20091125
